FAERS Safety Report 5000716-2 (Version None)
Quarter: 2006Q2

REPORT INFORMATION
  Report Type: 
  Country: None (occurrence: None)
  Receive Date: 20060512
  Receipt Date: 20060317
  Transmission Date: 20061013
  Serious: Yes (Hospitalization)
  Sender: FDA-Public Use
  Company Number: US-AVENTIS-200612719US

PATIENT
  Sex: Male
  Weight: 97 kg

DRUGS (4)
  1. APIDRA [Suspect]
     Indication: DIABETES MELLITUS
     Dosage: DOSE UNIT: UNITS
     Dates: start: 20060313, end: 20060313
  2. HUMALOG [Concomitant]
     Dosage: DOSE: UNKNOWN
  3. LANTUS [Concomitant]
     Dosage: DOSE: UNKNOWN
  4. LANTUS [Concomitant]
     Dosage: DOSE: UNKNOWN

REACTIONS (3)
  - DIABETES MELLITUS INADEQUATE CONTROL [None]
  - EPILEPSY [None]
  - HYPERGLYCAEMIA [None]
